FAERS Safety Report 20729319 (Version 1)
Quarter: 2022Q2

REPORT INFORMATION
  Report Type: Spontaneous
  Country: DK (occurrence: DK)
  Receive Date: 20220420
  Receipt Date: 20220420
  Transmission Date: 20220721
  Serious: Yes (Hospitalization)
  Sender: FDA-Public Use
  Company Number: DK-STRIDES ARCOLAB LIMITED-2022SP004112

PATIENT
  Age: 60 Year
  Sex: Female

DRUGS (3)
  1. TACROLIMUS [Interacting]
     Active Substance: TACROLIMUS
     Indication: Allogenic stem cell transplantation
     Dosage: 0.25 MILLIGRAM PER DAY
     Route: 065
  2. TACROLIMUS [Interacting]
     Active Substance: TACROLIMUS
     Indication: Prophylaxis against graft versus host disease
  3. CLARITHROMYCIN [Interacting]
     Active Substance: CLARITHROMYCIN
     Indication: Pneumonia
     Dosage: 1000 MILLIGRAM PER DAY
     Route: 065

REACTIONS (3)
  - Neuropsychiatric symptoms [Recovered/Resolved]
  - Drug interaction [Unknown]
  - Off label use [Unknown]
